FAERS Safety Report 10622037 (Version 1)
Quarter: 2014Q4

REPORT INFORMATION
  Report Type: Spontaneous
  Country: US (occurrence: None)
  Receive Date: 20141201
  Receipt Date: 20141201
  Transmission Date: 20150529
  Serious: Yes (Other)
  Sender: FDA-Public Use
  Company Number: None

PATIENT
  Age: 26 Year
  Sex: Female
  Weight: 56.7 kg

DRUGS (3)
  1. ICY HOT [Suspect]
     Active Substance: MENTHOL\METHYL SALICYLATE
     Indication: MUSCLE TIGHTNESS
     Dosage: CREAM - LIBERALLY, AS NEEDED, APPLIED TO A SURFACE, USUALLY THE SKIN
     Dates: start: 20141126, end: 20141126
  2. ICY HOT [Suspect]
     Active Substance: MENTHOL\METHYL SALICYLATE
     Indication: BACK PAIN
     Dosage: CREAM - LIBERALLY, AS NEEDED, APPLIED TO A SURFACE, USUALLY THE SKIN
     Dates: start: 20141126, end: 20141126
  3. ICY HOT [Suspect]
     Active Substance: MENTHOL\METHYL SALICYLATE
     Indication: NECK PAIN
     Dosage: CREAM - LIBERALLY, AS NEEDED, APPLIED TO A SURFACE, USUALLY THE SKIN
     Dates: start: 20141126, end: 20141126

REACTIONS (2)
  - Application site pain [None]
  - Application site erythema [None]

NARRATIVE: CASE EVENT DATE: 20141126
